FAERS Safety Report 6946450-0 (Version None)
Quarter: 2010Q3

REPORT INFORMATION
  Report Type: 
  Country: None (occurrence: None)
  Receive Date: 20100827
  Receipt Date: 20090729
  Transmission Date: 20110219
  Serious: No
  Sender: FDA-Public Use
  Company Number: US-ABBOTT-09P-163-0588438-00

PATIENT
  Sex: Female
  Weight: 61.29 kg

DRUGS (8)
  1. NIASPAN [Suspect]
     Indication: BLOOD CHOLESTEROL
     Route: 048
     Dates: start: 20090719
  2. METOPROLOL [Concomitant]
     Indication: HYPERTENSION
     Route: 048
  3. BENAZEPRIL/HCTZ [Concomitant]
     Indication: HYPERTENSION
     Dosage: 20/12.5, ONCE DAILY
     Route: 048
  4. PANTOPRAZOLE [Concomitant]
     Indication: GASTROOESOPHAGEAL REFLUX DISEASE
     Route: 048
  5. HYDROXYZINE [Concomitant]
     Indication: ECZEMA
     Route: 048
  6. ASPIRIN [Concomitant]
     Indication: FLUSHING
     Route: 048
  7. ASPIRIN [Concomitant]
     Indication: PROPHYLAXIS
  8. ASPIRIN [Concomitant]
     Indication: CARDIAC DISORDER

REACTIONS (4)
  - FLUSHING [None]
  - OEDEMA PERIPHERAL [None]
  - PRURITUS [None]
  - URTICARIA [None]
